FAERS Safety Report 5459025-X (Version None)
Quarter: 2007Q3

REPORT INFORMATION
  Report Type: 
  Country: None (occurrence: None)
  Receive Date: 20070919
  Receipt Date: 20070913
  Transmission Date: 20080115
  Serious: Yes (Other)
  Sender: FDA-Public Use
  Company Number: CA-ASTRAZENECA-2007UW09285

PATIENT
  Age: 76 Year
  Sex: Female

DRUGS (5)
  1. ARIMIDEX [Suspect]
     Indication: BREAST CANCER
     Route: 048
     Dates: start: 20060801
  2. VITAMIN D [Concomitant]
  3. VOLTAREN [Concomitant]
     Indication: ARTHRITIS
  4. SYNTHROID [Concomitant]
     Indication: THYROID DISORDER
  5. CALCIUM [Concomitant]

REACTIONS (13)
  - ALOPECIA [None]
  - ARTHRITIS [None]
  - CARPAL TUNNEL SYNDROME [None]
  - DRY SKIN [None]
  - GAIT DISTURBANCE [None]
  - HOT FLUSH [None]
  - JOINT SWELLING [None]
  - MYALGIA [None]
  - PARAESTHESIA [None]
  - RASH MACULAR [None]
  - RASH PRURITIC [None]
  - SKIN BURNING SENSATION [None]
  - VULVOVAGINAL DRYNESS [None]
